FAERS Safety Report 25577279 (Version 2)
Quarter: 2025Q3

REPORT INFORMATION
  Report Type: Spontaneous
  Country: EU (occurrence: EU)
  Receive Date: 20250718
  Receipt Date: 20250724
  Transmission Date: 20251020
  Serious: Yes (Hospitalization)
  Sender: NOVARTIS
  Company Number: EU-JGL-ICSR000907

PATIENT
  Age: 67 Year
  Sex: Female

DRUGS (11)
  1. CARBAMAZEPINE [Suspect]
     Active Substance: CARBAMAZEPINE
     Indication: Product used for unknown indication
     Dosage: 200 MG, QD (200 MILLIGRAM, DAILY)
     Route: 065
  2. CARBAMAZEPINE [Suspect]
     Active Substance: CARBAMAZEPINE
     Dosage: 400 MG, QD (400 MILLIGRAM, DAILY)
     Route: 065
  3. OLANZAPINE [Suspect]
     Active Substance: OLANZAPINE
     Indication: Product used for unknown indication
     Dosage: 5 MG, QD (5 MILLIGRAM, DAILY)
     Route: 065
  4. OLANZAPINE [Suspect]
     Active Substance: OLANZAPINE
     Dosage: 10 MG, QD (10 MILLIGRAM, DAILY)
     Route: 065
  5. FLURAZEPAM [Suspect]
     Active Substance: FLURAZEPAM HYDROCHLORIDE
     Indication: Product used for unknown indication
     Route: 065
  6. DULOXETINE [Suspect]
     Active Substance: DULOXETINE
     Indication: Product used for unknown indication
     Dosage: 120 MG, QD (120 MILLIGRAM, DAILY  )
     Route: 065
  7. DULOXETINE [Suspect]
     Active Substance: DULOXETINE
     Dosage: 90 MG, QD (90 MILLIGRAM, DAILY)
     Route: 065
  8. OXAZEPAM [Suspect]
     Active Substance: OXAZEPAM
     Indication: Product used for unknown indication
     Dosage: 60 MG, QD (60 MILLIGRAM, DAILY)
     Route: 065
  9. OXAZEPAM [Suspect]
     Active Substance: OXAZEPAM
     Dosage: 45 MG, QD (45 MILLIGRAM, DAILY)
     Route: 065
  10. FLUVOXAMINE [Suspect]
     Active Substance: FLUVOXAMINE
     Indication: Product used for unknown indication
     Dosage: 100 MG, QD (100 MILLIGRAM, DAILY)
     Route: 065
  11. MAPROTILINE [Suspect]
     Active Substance: MAPROTILINE
     Indication: Product used for unknown indication
     Dosage: 75 MG, QD (75 MILLIGRAM, DAILY  )
     Route: 065

REACTIONS (4)
  - Sedation [Unknown]
  - Drug ineffective [Not Recovered/Not Resolved]
  - Somatic symptom disorder [Unknown]
  - Constipation [Unknown]
